FAERS Safety Report 13743504 (Version 1)
Quarter: 2017Q3

REPORT INFORMATION
  Report Type: Spontaneous
  Country: FR (occurrence: FR)
  Receive Date: 20170711
  Receipt Date: 20170711
  Transmission Date: 20171127
  Serious: Yes (Other)
  Sender: FDA-Public Use
  Company Number: FR-BAYER-2017-131530

PATIENT
  Age: 36 Year
  Sex: Female

DRUGS (2)
  1. MIRENA [Suspect]
     Active Substance: LEVONORGESTREL
     Indication: CONTRACEPTION
     Dosage: 20 MCG/24HR, CONT
     Route: 015
     Dates: start: 20110914, end: 20150710
  2. MIRENA [Suspect]
     Active Substance: LEVONORGESTREL
     Indication: CONTRACEPTION
     Dosage: 20 MCG/24HR, CONT
     Route: 015
     Dates: start: 20170110, end: 20170523

REACTIONS (18)
  - Depression [Not Recovered/Not Resolved]
  - Aggression [Not Recovered/Not Resolved]
  - Liver disorder [Not Recovered/Not Resolved]
  - Amnesia [Not Recovered/Not Resolved]
  - Cyst [Not Recovered/Not Resolved]
  - Fatigue [Not Recovered/Not Resolved]
  - Vertigo [Not Recovered/Not Resolved]
  - Mood swings [Not Recovered/Not Resolved]
  - Migraine [Not Recovered/Not Resolved]
  - Stress [Not Recovered/Not Resolved]
  - Loss of libido [Not Recovered/Not Resolved]
  - Abdominal pain [Not Recovered/Not Resolved]
  - Suppressed lactation [Not Recovered/Not Resolved]
  - Myalgia [Not Recovered/Not Resolved]
  - Hyperhidrosis [Not Recovered/Not Resolved]
  - Back pain [Not Recovered/Not Resolved]
  - Photophobia [Not Recovered/Not Resolved]
  - Speech disorder [Not Recovered/Not Resolved]
